FAERS Safety Report 24818180 (Version 1)
Quarter: 2025Q1

REPORT INFORMATION
  Report Type: Spontaneous
  Country: JP (occurrence: None)
  Receive Date: 20250108
  Receipt Date: 20250108
  Transmission Date: 20250409
  Serious: Yes (Death, Hospitalization)
  Sender: CMP PHARMA
  Company Number: JP-CMPPHARMA-000451

PATIENT
  Age: 65 Year
  Sex: Male

DRUGS (1)
  1. ISONIAZID [Suspect]
     Active Substance: ISONIAZID
     Indication: Latent tuberculosis

REACTIONS (2)
  - Acute hepatic failure [Fatal]
  - Death [Fatal]
